FAERS Safety Report 14280594 (Version 1)
Quarter: 2017Q4

REPORT INFORMATION
  Report Type: Spontaneous
  Country: US (occurrence: None)
  Receive Date: 20171212
  Receipt Date: 20171212
  Transmission Date: 20180321
  Serious: Yes (Death)
  Sender: FDA-Public Use
  Company Number: None

PATIENT
  Age: 70 Year
  Sex: Female

DRUGS (13)
  1. PANTOPRAZOLE [Concomitant]
     Active Substance: PANTOPRAZOLE
  2. ONDANSETRON [Concomitant]
     Active Substance: ONDANSETRON
  3. DILTIAZEM. [Concomitant]
     Active Substance: DILTIAZEM
  4. HYDROCODONE [Concomitant]
     Active Substance: HYDROCODONE
  5. LOSARTAN. [Concomitant]
     Active Substance: LOSARTAN
  6. MORPHINE [Concomitant]
     Active Substance: MORPHINE
  7. METFORMIN [Concomitant]
     Active Substance: METFORMIN HYDROCHLORIDE
  8. ALLOPURINOL. [Concomitant]
     Active Substance: ALLOPURINOL
  9. SMZ/TMP DS [Concomitant]
     Active Substance: SULFAMETHOXAZOLE\TRIMETHOPRIM
  10. NIACIN. [Concomitant]
     Active Substance: NIACIN
  11. CAPECITABINE 500MG [Suspect]
     Active Substance: CAPECITABINE
     Indication: PANCREATIC CARCINOMA
     Dosage: 3 TABS BID ORAL
     Route: 048
     Dates: start: 20171109
  12. DOCUSATE [Concomitant]
     Active Substance: DOCUSATE
  13. LANTUS [Concomitant]
     Active Substance: INSULIN GLARGINE

REACTIONS (1)
  - Death [None]
